FAERS Safety Report 5249155-X (Version None)
Quarter: 2007Q1

REPORT INFORMATION
  Report Type: 
  Country: None (occurrence: None)
  Receive Date: 20070228
  Receipt Date: 20070220
  Transmission Date: 20070707
  Serious: Yes (Hospitalization, Other)
  Sender: FDA-Public Use
  Company Number: PHBS2007FR02029

PATIENT
  Age: 63 Year
  Sex: Male
  Weight: 45 kg

DRUGS (2)
  1. DICLOFENAC SODIUM [Suspect]
     Indication: RHEUMATOID ARTHRITIS
     Dosage: 300 MG/DAY
  2. OMEPRAZOLE [Concomitant]
     Dosage: 10 MG/DAY
     Route: 048

REACTIONS (23)
  - ABDOMINAL DISTENSION [None]
  - ABDOMINAL PAIN [None]
  - BLOOD ALBUMIN DECREASED [None]
  - BLOOD CREATININE INCREASED [None]
  - C-REACTIVE PROTEIN INCREASED [None]
  - CACHEXIA [None]
  - COLITIS [None]
  - COLON OPERATION [None]
  - COLONIC STENOSIS [None]
  - COLONOSCOPY [None]
  - DIARRHOEA [None]
  - ENTERAL NUTRITION [None]
  - HAEMOGLOBIN DECREASED [None]
  - HYPOPROTEINAEMIA [None]
  - ILEAL STENOSIS [None]
  - NORMOCHROMIC NORMOCYTIC ANAEMIA [None]
  - PALLOR [None]
  - PLATELET COUNT DECREASED [None]
  - RENAL FAILURE [None]
  - RESPIRATORY DISORDER [None]
  - TENDERNESS [None]
  - THROMBOCYTOPENIA [None]
  - WEIGHT DECREASED [None]
